FAERS Safety Report 8764693 (Version 2)
Quarter: 2012Q4

REPORT INFORMATION
  Report Type: 
  Country: US (occurrence: US)
  Receive Date: 20120831
  Receipt Date: 20120913
  Transmission Date: 20130627
  Serious: Yes (Hospitalization)
  Sender: FDA-Public Use
  Company Number: US-PFIZER INC-2012205019

PATIENT
  Age: 70 Year
  Sex: Male
  Weight: 104.3 kg

DRUGS (25)
  1. TORISEL [Suspect]
     Indication: CHRONIC LYMPHOCYTIC LEUKAEMIA
     Dosage: 25 mg, on days 1 and 8
     Route: 042
     Dates: start: 20120730, end: 20120806
  2. TORISEL [Suspect]
     Indication: B-CELL SMALL LYMPHOCYTIC LYMPHOMA
  3. VELCADE [Suspect]
     Indication: CHRONIC LYMPHOCYTIC LEUKAEMIA
     Dosage: 3.6 mg on days 1 and 8
     Route: 042
     Dates: start: 20120730, end: 20120806
  4. VELCADE [Suspect]
     Indication: B-CELL SMALL LYMPHOCYTIC LYMPHOMA
  5. ACYCLOVIR [Concomitant]
     Dosage: 800 mg, 2x/day
     Route: 048
  6. ALLOPURINOL [Concomitant]
     Dosage: 300 mg, daily
     Route: 048
  7. ASPIRIN [Concomitant]
     Dosage: 81 mg, daily
     Route: 048
  8. BACLOFEN [Concomitant]
     Dosage: 10 mg, 3x/day
     Route: 048
  9. CLONAZEPAM [Concomitant]
     Dosage: 0.25 mg, 2x/day
     Route: 048
  10. VITAMIN D [Concomitant]
     Dosage: 2000 IU, daily
     Route: 048
  11. FEXOFENADINE [Concomitant]
     Dosage: 120 mg, daily
     Route: 048
  12. FLUCONAZOLE [Concomitant]
     Dosage: 200 mg, daily
     Route: 048
  13. HYDROCHLOROTHIAZIDE [Concomitant]
     Dosage: 25 mg, daily
     Route: 048
  14. LORAZEPAM [Concomitant]
     Dosage: 0.5 mg, as needed
     Route: 048
  15. MAGNESIUM CITRATE [Concomitant]
     Indication: CONSTIPATION
     Dosage: 300 mg, UNK
     Route: 048
  16. OMEPRAZOLE [Concomitant]
     Dosage: 20 mg, daily
     Route: 048
  17. ONDANSETRON [Concomitant]
     Indication: NAUSEA
     Dosage: 8 mg, as needed
     Route: 048
  18. POLYETHYLENE GLYCOL [Concomitant]
     Dosage: 17 g, daily as needed
     Route: 048
  19. PROCHLORPERAZINE [Concomitant]
     Dosage: 10 mg, every six hours as needed
     Route: 048
  20. SEPTRA [Concomitant]
     Dosage: SULFAMETHOXAZOLE 800 mg/ TRIMETHOPRIM160 mg, twice daily on Mondays and Thursday.
     Route: 048
  21. ZOLPIDEM [Concomitant]
     Dosage: 10 mg, every night at bedtime
     Route: 048
  22. CODEINE  GUAIFENESIN [Concomitant]
     Indication: COUGH
     Dosage: 5 mg, as needed
     Route: 048
  23. OXYCONTIN [Concomitant]
     Dosage: 5 mg, as needed immediate release
     Route: 048
  24. OXYCONTIN [Concomitant]
     Dosage: 10 mg, every 12 hours, slow release
     Route: 048
  25. LEVOFLOXACIN [Concomitant]
     Dosage: 500 mg, daily
     Route: 048
     Dates: start: 20120809

REACTIONS (3)
  - Groin pain [Unknown]
  - Thrombocytopenia [Unknown]
  - Lobar pneumonia [Unknown]
